FAERS Safety Report 6618065-5 (Version None)
Quarter: 2010Q1

REPORT INFORMATION
  Report Type: 
  Country: None (occurrence: None)
  Receive Date: 20100302
  Receipt Date: 20100223
  Transmission Date: 20100710
  Serious: Yes (Death)
  Sender: FDA-Public Use
  Company Number: 2010SP011019

PATIENT
  Age: 63 Year
  Sex: Male

DRUGS (10)
  1. POSACONAZOLE [Suspect]
     Indication: PROPHYLAXIS
     Dates: end: 20091209
  2. POSACONAZOLE [Suspect]
     Indication: PROPHYLAXIS
     Dates: start: 20091211
  3. LEVOFLOXACIN [Concomitant]
  4. NEUPOGEN [Concomitant]
  5. ACYCLOVIR [Concomitant]
  6. AMLODIPINE [Concomitant]
  7. LOW MOLECULAR WEIGHT [Concomitant]
  8. HEPARIN [Concomitant]
  9. CYCLOSPORINE [Concomitant]
  10. METHYLPREDNISOLONE [Concomitant]

REACTIONS (24)
  - ACUTE GRAFT VERSUS HOST DISEASE IN INTESTINE [None]
  - BRAIN HERNIATION [None]
  - BRAIN OEDEMA [None]
  - BRONCHOPULMONARY ASPERGILLOSIS [None]
  - CENTRAL NERVOUS SYSTEM LYMPHOMA [None]
  - CEREBRAL ASPERGILLOSIS [None]
  - CHOLELITHIASIS [None]
  - CULTURE URINE POSITIVE [None]
  - DRUG INEFFECTIVE [None]
  - ENGRAFT FAILURE [None]
  - ENTEROCOCCAL INFECTION [None]
  - ESCHERICHIA INFECTION [None]
  - GRAFT COMPLICATION [None]
  - GRAFT VERSUS HOST DISEASE [None]
  - INTRACRANIAL PRESSURE INCREASED [None]
  - KLEBSIELLA INFECTION [None]
  - LUNG CONSOLIDATION [None]
  - MYOPATHY [None]
  - NEUROLOGICAL DECOMPENSATION [None]
  - PLEURAL EFFUSION [None]
  - PNEUMONIA LEGIONELLA [None]
  - PNEUMONIA NECROTISING [None]
  - PULMONARY EMBOLISM [None]
  - TREATMENT RELATED SECONDARY MALIGNANCY [None]
